FAERS Safety Report 4798243-0 (Version None)
Quarter: 2005Q4

REPORT INFORMATION
  Report Type: 
  Country: None (occurrence: None)
  Receive Date: 20051014
  Receipt Date: 20051003
  Transmission Date: 20060501
  Serious: Yes (Hospitalization)
  Sender: FDA-Public Use
  Company Number: US-AMGEN-US152938

PATIENT
  Sex: Male

DRUGS (3)
  1. NEUPOGEN [Suspect]
     Indication: CHEMOTHERAPY
  2. CLINDAMYCIN [Concomitant]
  3. GENTAMICIN [Concomitant]

REACTIONS (3)
  - EYELID OEDEMA [None]
  - INFECTION [None]
  - PYREXIA [None]
